FAERS Safety Report 10094351 (Version 1)
Quarter: 2014Q2

REPORT INFORMATION
  Report Type: Spontaneous
  Country: US (occurrence: None)
  Receive Date: 20140421
  Receipt Date: 20140421
  Transmission Date: 20141212
  Serious: Yes (Other)
  Sender: FDA-Public Use
  Company Number: None

PATIENT
  Age: 23 Year
  Sex: Female
  Weight: 58.06 kg

DRUGS (2)
  1. SUPRAX [Suspect]
     Indication: SINUSITIS
  2. SUPRAX [Suspect]
     Indication: MULTIPLE ALLERGIES

REACTIONS (13)
  - Haematochezia [None]
  - Rectal haemorrhage [None]
  - Mucous stools [None]
  - Abdominal pain [None]
  - Diarrhoea [None]
  - Weight decreased [None]
  - Rash [None]
  - Impaired work ability [None]
  - Dyspepsia [None]
  - Anorectal disorder [None]
  - Pruritus [None]
  - Feeling hot [None]
  - Rash papular [None]
